FAERS Safety Report 8745977 (Version 4)
Quarter: 2013Q2

REPORT INFORMATION
  Report Type: Spontaneous
  Country: IE (occurrence: IE)
  Receive Date: 20120827
  Receipt Date: 20130507
  Transmission Date: 20140414
  Serious: Yes (Hospitalization, Other)
  Sender: FDA-Public Use
  Company Number: IE-JNJFOC-20120809922

PATIENT
  Age: 38 Year
  Sex: Female

DRUGS (12)
  1. SIMPONI [Suspect]
     Indication: RHEUMATOID ARTHRITIS
     Route: 058
     Dates: start: 200808, end: 201207
  2. HYDROXYCHLOROQUINE [Concomitant]
     Route: 065
  3. ZYDOL [Concomitant]
     Route: 065
  4. ALL OTHER THERAPEUTICS [Concomitant]
     Route: 065
  5. VERSATIS [Concomitant]
     Route: 065
  6. RAMIPRIL [Concomitant]
     Route: 065
  7. SOLPADEINE [Concomitant]
     Route: 065
  8. PROTIUM [Concomitant]
     Route: 065
  9. NEBILET [Concomitant]
     Route: 065
  10. TRITACE [Concomitant]
     Route: 065
  11. SULPHASALAZINE [Concomitant]
     Route: 065
  12. EZETIMIBE [Concomitant]
     Route: 065

REACTIONS (2)
  - Campylobacter gastroenteritis [Unknown]
  - Colitis [Unknown]
